FAERS Safety Report 9342577 (Version 1)
Quarter: 2013Q2

REPORT INFORMATION
  Report Type: Report from Study
  Country: US (occurrence: US)
  Receive Date: 20130611
  Receipt Date: 20130611
  Transmission Date: 20140414
  Serious: Yes (Death, Hospitalization, Other)
  Sender: FDA-Public Use
  Company Number: US-BRISTOL-MYERS SQUIBB COMPANY-14299986

PATIENT
  Age: 40 Year
  Sex: Male

DRUGS (6)
  1. IPILIMUMAB [Suspect]
     Indication: MALIGNANT MELANOMA
     Dosage: 1 DOSAGE FORM = 834(UNITS NOT SPECIFIED)?TAKEN 764 MG ?17JUL08-19SEP08:766MG -NO OF COURSE:3
     Route: 042
     Dates: start: 20080717, end: 20080717
  2. AMBIEN [Concomitant]
     Dosage: QHS
     Route: 048
     Dates: start: 20080716
  3. ATENOLOL [Concomitant]
  4. CENTRUM [Concomitant]
     Dates: start: 20080716
  5. SYNTHROID [Concomitant]
     Dates: start: 20080829
  6. ATIVAN [Concomitant]

REACTIONS (4)
  - Malignant neoplasm progression [Fatal]
  - Small intestinal obstruction [Recovered/Resolved]
  - Abdominal pain [Unknown]
  - Haemoglobin decreased [Recovered/Resolved with Sequelae]
